FAERS Safety Report 6108416-2 (Version None)
Quarter: 2009Q1

REPORT INFORMATION
  Report Type: 
  Country: None (occurrence: None)
  Receive Date: 20090309
  Receipt Date: 20090304
  Transmission Date: 20090719
  Serious: Yes (Other)
  Sender: FDA-Public Use
  Company Number: PHEH2009US02320

PATIENT
  Sex: Male

DRUGS (3)
  1. LAMISIL [Suspect]
     Indication: ONYCHOMYCOSIS
     Dosage: UNK
     Dates: start: 20070101
  2. LAMISIL [Suspect]
     Dosage: NO TREATMENT
  3. LAMISIL [Suspect]
     Dosage: UNK
     Dates: start: 20080401, end: 20090201

REACTIONS (3)
  - CATARACT [None]
  - DISEASE RECURRENCE [None]
  - DRUG EFFECT DECREASED [None]
